FAERS Safety Report 5093540-6 (Version None)
Quarter: 2006Q3

REPORT INFORMATION
  Report Type: 
  Country: None (occurrence: None)
  Receive Date: 20060731
  Receipt Date: 20060412
  Transmission Date: 20061208
  Serious: No
  Sender: FDA-Public Use
  Company Number: 2006PV012074

PATIENT
  Sex: Male

DRUGS (1)
  1. BYETTA [Suspect]
     Indication: DRUG USE FOR UNKNOWN INDICATION
     Dosage: 10 MCG, SC, 5 MCG, SC
     Route: 058

REACTIONS (2)
  - ABDOMINAL DISTENSION [None]
  - DIARRHOEA [None]
